FAERS Safety Report 21342163 (Version 1)
Quarter: 2022Q3

REPORT INFORMATION
  Report Type: Spontaneous
  Country: KP (occurrence: KP)
  Receive Date: 20220916
  Receipt Date: 20220916
  Transmission Date: 20221027
  Serious: Yes (Other)
  Sender: FDA-Public Use
  Company Number: KP-BAUSCH-BL-2022-021987

PATIENT
  Age: 22 Year
  Sex: Female

DRUGS (4)
  1. RIFAXIMIN [Suspect]
     Active Substance: RIFAXIMIN
     Indication: Product used for unknown indication
     Route: 048
     Dates: start: 20220903
  2. ALVERINE CITRATE\DIMETHICONE [Suspect]
     Active Substance: ALVERINE CITRATE\DIMETHICONE
     Indication: Product used for unknown indication
     Route: 065
     Dates: start: 20220903
  3. MONTMORILLONITE [Suspect]
     Active Substance: MONTMORILLONITE
     Indication: Product used for unknown indication
     Dosage: 15 % 20 ML, SUSP SACHET
     Route: 065
     Dates: start: 20220903
  4. HERBALS [Suspect]
     Active Substance: HERBALS
     Indication: Product used for unknown indication
     Route: 065
     Dates: start: 20220903

REACTIONS (4)
  - Blood pressure decreased [Unknown]
  - Anaphylactic reaction [Unknown]
  - Rash [Unknown]
  - Dyspnoea [Unknown]

NARRATIVE: CASE EVENT DATE: 20220903
